FAERS Safety Report 15550501 (Version 1)
Quarter: 2018Q4

REPORT INFORMATION
  Report Type: Spontaneous
  Country: US (occurrence: US)
  Receive Date: 20181025
  Receipt Date: 20181025
  Transmission Date: 20190205
  Serious: No
  Sender: FDA-Public Use
  Company Number: US-BAUSCH-SYM-2014-19544

PATIENT
  Age: 93 Year
  Sex: Female

DRUGS (1)
  1. MAXAIR AUTOHALER [Suspect]
     Active Substance: PIRBUTEROL ACETATE
     Indication: DYSPNOEA
     Dosage: AS NEEDED

REACTIONS (2)
  - Dyspnoea [Recovered/Resolved]
  - Drug ineffective [Not Recovered/Not Resolved]

NARRATIVE: CASE EVENT DATE: 20140402
